FAERS Safety Report 13928667 (Version 1)
Quarter: 2017Q3

REPORT INFORMATION
  Report Type: Spontaneous
  Country: JP (occurrence: JP)
  Receive Date: 20170901
  Receipt Date: 20170901
  Transmission Date: 20171127
  Serious: Yes (Other)
  Sender: FDA-Public Use
  Company Number: JP-PFIZER INC-2017370395

PATIENT
  Sex: Female

DRUGS (2)
  1. PREMARIN [Suspect]
     Active Substance: ESTROGENS, CONJUGATED
     Dosage: UNK
     Route: 048
     Dates: start: 201707
  2. LUTORAL [Suspect]
     Active Substance: CHLORMADINONE ACETATE
     Route: 048

REACTIONS (2)
  - Tooth loss [Unknown]
  - Haemorrhage [Unknown]
